FAERS Safety Report 4973299-0 (Version None)
Quarter: 2006Q2

REPORT INFORMATION
  Report Type: 
  Country: None (occurrence: None)
  Receive Date: 20060414
  Receipt Date: 20060407
  Transmission Date: 20061013
  Serious: Yes (Other)
  Sender: FDA-Public Use
  Company Number: US-JNJFOC-20060402276

PATIENT
  Sex: Male

DRUGS (2)
  1. SPORANOX [Suspect]
     Indication: FUNGAL INFECTION
  2. ASCORBIC ACID [Concomitant]

REACTIONS (1)
  - BLOOD CREATININE INCREASED [None]
